FAERS Safety Report 13835566 (Version 1)
Quarter: 2017Q3

REPORT INFORMATION
  Report Type: Spontaneous
  Country: US (occurrence: US)
  Receive Date: 20170804
  Receipt Date: 20170804
  Transmission Date: 20171127
  Serious: No
  Sender: FDA-Public Use
  Company Number: None

PATIENT
  Sex: Female
  Weight: 72.9 kg

DRUGS (1)
  1. BUSPIRONE HCL 5MG [Suspect]
     Active Substance: BUSPIRONE HYDROCHLORIDE
     Indication: ANXIETY
     Dosage: ?          QUANTITY:1 TABLET(S);?
     Route: 048
     Dates: start: 20170616, end: 20170801

REACTIONS (5)
  - Diarrhoea [None]
  - Tachyphrenia [None]
  - Panic reaction [None]
  - Dissociation [None]
  - Insomnia [None]

NARRATIVE: CASE EVENT DATE: 20170712
